FAERS Safety Report 9400340 (Version 1)
Quarter: 2013Q3

REPORT INFORMATION
  Report Type: Spontaneous
  Country: KR (occurrence: KR)
  Receive Date: 20130715
  Receipt Date: 20130715
  Transmission Date: 20140515
  Serious: Yes (Hospitalization)
  Sender: FDA-Public Use
  Company Number: PHHY2013KR073077

PATIENT
  Age: 6 Month
  Sex: Female

DRUGS (2)
  1. VALPROIC ACID [Suspect]
     Indication: CONVULSION
     Dosage: UNK UKN, UNK
  2. VALPROIC ACID [Suspect]
     Dosage: 30 MG/KG, UNK

REACTIONS (9)
  - Hypogammaglobulinaemia [Not Recovered/Not Resolved]
  - Drug level increased [Recovered/Resolved]
  - Iron deficiency anaemia [Recovered/Resolved]
  - Pancytopenia [Recovered/Resolved]
  - Normochromic normocytic anaemia [Unknown]
  - Grand mal convulsion [Unknown]
  - Clonus [Unknown]
  - Clonic convulsion [Unknown]
  - Petechiae [Unknown]
